FAERS Safety Report 10562018 (Version 2)
Quarter: 2014Q4

REPORT INFORMATION
  Report Type: Spontaneous
  Country: FR (occurrence: FR)
  Receive Date: 20141104
  Receipt Date: 20141115
  Transmission Date: 20150529
  Serious: Yes (Hospitalization)
  Sender: FDA-Public Use
  Company Number: FR-ASTRAZENECA-2014SE81373

PATIENT
  Age: 18101 Day
  Sex: Female
  Weight: 94 kg

DRUGS (2)
  1. BUPIVACAINE SPINAL [Suspect]
     Active Substance: BUPIVACAINE
     Indication: EPIDURAL ANAESTHESIA
     Dosage: 7.5 MG/ML,  12.5 MG
     Route: 037
  2. ROPIVACAINE FRESENIUS (GENERIC PRODUCT - NON AZ PRODUCT) [Suspect]
     Active Substance: ROPIVACAINE
     Indication: EPIDURAL ANAESTHESIA
     Route: 037
     Dates: start: 20141003, end: 20141003

REACTIONS (2)
  - Drug administration error [Recovered/Resolved]
  - Sensorimotor disorder [Recovered/Resolved]

NARRATIVE: CASE EVENT DATE: 20141003
